FAERS Safety Report 6030215-0 (Version None)
Quarter: 2009Q1

REPORT INFORMATION
  Report Type: 
  Country: None (occurrence: None)
  Receive Date: 20090107
  Receipt Date: 20081229
  Transmission Date: 20090719
  Serious: Yes (Hospitalization, Disabling)
  Sender: FDA-Public Use
  Company Number: CL-ROCHE-605977

PATIENT
  Age: 56 Year
  Sex: Female
  Weight: 63.5 kg

DRUGS (4)
  1. XELODA [Suspect]
     Dosage: DOSAGE: 5 TABLET PER DAY (3 TABS IN MORNING AND 2 TABS IN EVENING), STRENGTH: 500 MG/TABLET
     Route: 048
     Dates: start: 20081212, end: 20081212
  2. TRAMADOL HCL [Concomitant]
     Indication: PAIN
     Route: 048
  3. AMITRIPTYLINE HCL [Concomitant]
     Route: 048
  4. CLONAZEPAM [Concomitant]
     Route: 048

REACTIONS (10)
  - BURNING SENSATION [None]
  - DYSPNOEA [None]
  - ERYTHEMA [None]
  - LOSS OF CONSCIOUSNESS [None]
  - PARAESTHESIA [None]
  - PYREXIA [None]
  - RASH MACULAR [None]
  - URINARY TRACT INFECTION [None]
  - VOMITING [None]
  - VOMITING PROJECTILE [None]
